FAERS Safety Report 25751479 (Version 1)
Quarter: 2025Q3

REPORT INFORMATION
  Report Type: Report from Study
  Country: US (occurrence: US)
  Receive Date: 20250902
  Receipt Date: 20250902
  Transmission Date: 20251021
  Serious: Yes (Other)
  Sender: ALEXION PHARMACEUTICALS
  Company Number: US-AstraZeneca-CH-00939611A

PATIENT
  Sex: Female

DRUGS (2)
  1. TEZEPELUMAB [Suspect]
     Active Substance: TEZEPELUMAB
     Route: 065
  2. TEZEPELUMAB [Suspect]
     Active Substance: TEZEPELUMAB

REACTIONS (13)
  - Pulmonary fibrosis [Unknown]
  - Bronchitis [Not Recovered/Not Resolved]
  - Fatigue [Unknown]
  - Insomnia [Unknown]
  - Blood glucose decreased [Unknown]
  - White blood cell count decreased [Unknown]
  - Hepatic cirrhosis [Unknown]
  - Viral infection [Unknown]
  - Wound [Unknown]
  - Rash [Unknown]
  - Immune system disorder [Unknown]
  - Impaired healing [Unknown]
  - Diabetes mellitus [Unknown]
